FAERS Safety Report 15256715 (Version 12)
Quarter: 2021Q1

REPORT INFORMATION
  Report Type: Report from Study
  Country: DE (occurrence: DE)
  Receive Date: 20180808
  Receipt Date: 20210202
  Transmission Date: 20210419
  Serious: Yes (Hospitalization, Other)
  Sender: FDA-Public Use
  Company Number: PHHY2018DE061568

PATIENT
  Age: 71 Year
  Sex: Female
  Weight: 70 kg

DRUGS (9)
  1. KISQALI [Suspect]
     Active Substance: RIBOCICLIB
     Indication: BREAST CANCER METASTATIC
     Dosage: 200 MG (SCHEME 21 DAYS INTAKE, 7 DAYS PAUSE)
     Route: 048
     Dates: start: 20180525, end: 20180702
  2. BISOPROLOL [Concomitant]
     Active Substance: BISOPROLOL
     Indication: HYPERTENSION
     Dosage: 5 MG, QD
     Route: 048
     Dates: start: 20050709
  3. PANTOZOL [Concomitant]
     Active Substance: PANTOPRAZOLE SODIUM
     Indication: PRODUCT USED FOR UNKNOWN INDICATION
     Dosage: 40 MG, BID
     Route: 065
  4. EXEMESTANE ARISTO [Concomitant]
     Indication: BREAST CANCER METASTATIC
     Dosage: 25 MG, QD (1 TABLET IN THE MORNING 1?0?0)
     Route: 048
     Dates: start: 20180525, end: 20180702
  5. VALSARTAN. [Concomitant]
     Active Substance: VALSARTAN
     Indication: PRODUCT USED FOR UNKNOWN INDICATION
     Dosage: 160 MG, UNK
     Route: 065
  6. THYROXINE [Concomitant]
     Active Substance: LEVOTHYROXINE
     Indication: THYROID DISORDER
     Dosage: 25 UG, QD
     Route: 048
     Dates: start: 20120615
  7. NOVALGIN [Concomitant]
     Indication: PRODUCT USED FOR UNKNOWN INDICATION
     Dosage: 500 MG, TID
     Route: 065
  8. SIMVASTATIN. [Concomitant]
     Active Substance: SIMVASTATIN
     Indication: HYPERCHOLESTEROLAEMIA
     Dosage: 40 MG, QD
     Route: 048
     Dates: start: 20080404
  9. AMLODIPINE [Concomitant]
     Active Substance: AMLODIPINE BESYLATE
     Indication: HYPERTENSION
     Dosage: 5 MG, QD
     Route: 048
     Dates: start: 20081030

REACTIONS (21)
  - Mitral valve incompetence [Recovering/Resolving]
  - Eye haematoma [Recovered/Resolved]
  - Fall [Unknown]
  - Hypotension [Unknown]
  - Scratch [Unknown]
  - Syncope [Unknown]
  - Coronary artery disease [Unknown]
  - Thrombophlebitis [Unknown]
  - General physical health deterioration [Unknown]
  - Palpitations [Unknown]
  - Acute myocardial infarction [Recovered/Resolved]
  - Dyspnoea [Unknown]
  - Brain natriuretic peptide increased [Unknown]
  - Electrocardiogram QT prolonged [Recovered/Resolved]
  - Pleural effusion [Unknown]
  - Arrhythmia [Recovering/Resolving]
  - Ventricular hypokinesia [Recovered/Resolved]
  - Troponin T increased [Unknown]
  - Cardiac failure [Recovered/Resolved]
  - Rib fracture [Unknown]
  - Lymphangiosis carcinomatosa [Unknown]

NARRATIVE: CASE EVENT DATE: 201807
